FAERS Safety Report 7099869-4 (Version None)
Quarter: 2010Q4

REPORT INFORMATION
  Report Type: 
  Country: None (occurrence: None)
  Receive Date: 20101112
  Receipt Date: 20101110
  Transmission Date: 20110411
  Serious: Yes (Other)
  Sender: FDA-Public Use
  Company Number: CN-PFIZER INC-2010145193

PATIENT
  Age: 73 Year
  Sex: Male

DRUGS (2)
  1. DIFLUCAN [Suspect]
     Indication: PNEUMONIA CRYPTOCOCCAL
     Dosage: 0.4 G, 1X/DAY
     Route: 041
  2. DIFLUCAN [Suspect]
     Dosage: 0.2 G, 1X/DAY
     Route: 041

REACTIONS (2)
  - DEPRESSED LEVEL OF CONSCIOUSNESS [None]
  - SPEECH DISORDER [None]
